FAERS Safety Report 17707965 (Version 7)
Quarter: 2020Q2

REPORT INFORMATION
  Report Type: Spontaneous
  Country: CA (occurrence: CA)
  Receive Date: 20200425
  Receipt Date: 20200625
  Transmission Date: 20200714
  Serious: Yes (Other)
  Sender: FDA-Public Use
  Company Number: CA-CELLTRION INC.-2020CA021852

PATIENT

DRUGS (7)
  1. INFLECTRA [Suspect]
     Active Substance: INFLIXIMAB-DYYB
     Dosage: 412.5 MG Q
     Route: 042
     Dates: start: 20200416
  2. INFLECTRA [Suspect]
     Active Substance: INFLIXIMAB-DYYB
     Dosage: 412.5 MG Q UNKNOWN
     Route: 042
     Dates: start: 20200416
  3. INFLECTRA [Suspect]
     Active Substance: INFLIXIMAB-DYYB
     Indication: COLITIS ULCERATIVE
     Dosage: 5 MG/KG AT 0, 2, 6 WEEKS,THEN EVERY 8 WEEKS
     Route: 042
     Dates: start: 20200401
  4. INFLECTRA [Suspect]
     Active Substance: INFLIXIMAB-DYYB
     Dosage: 412.5 MG Q UNKNOWN
     Route: 042
     Dates: start: 20200416
  5. INFLECTRA [Suspect]
     Active Substance: INFLIXIMAB-DYYB
     Dosage: 800 MG EVERY 6 WEEKS
     Route: 042
     Dates: start: 20200618
  6. INFLECTRA [Suspect]
     Active Substance: INFLIXIMAB-DYYB
     Dosage: 5 MG/KG AT 0, 2, 6 WEEKS,THEN EVERY 8 WEEKS
     Route: 042
     Dates: start: 20200521
  7. CORTISONE [Concomitant]
     Active Substance: CORTISONE
     Indication: INFLAMMATION
     Dosage: TAPER
     Route: 048
     Dates: start: 20200528

REACTIONS (7)
  - Off label use [Unknown]
  - Blood pressure increased [Unknown]
  - Blood pressure fluctuation [Unknown]
  - Condition aggravated [Unknown]
  - Product use issue [Unknown]
  - Off label use [Unknown]
  - Intentional product use issue [Unknown]

NARRATIVE: CASE EVENT DATE: 20200401
